FAERS Safety Report 5563653-0 (Version None)
Quarter: 2007Q4

REPORT INFORMATION
  Report Type: 
  Country: None (occurrence: None)
  Receive Date: 20071217
  Receipt Date: 20070720
  Transmission Date: 20080405
  Serious: No
  Sender: FDA-Public Use
  Company Number: US-ASTRAZENECA-2007UW17788

PATIENT
  Sex: Male
  Weight: 68 kg

DRUGS (4)
  1. CRESTOR [Suspect]
     Indication: DYSLIPIDAEMIA
     Route: 048
  2. ASPIRIN [Concomitant]
  3. NAPROSYN [Concomitant]
  4. HYDROCODONE/APAP SALICYLATE [Concomitant]

REACTIONS (7)
  - ARTHRALGIA [None]
  - ASTHENIA [None]
  - DEPRESSION [None]
  - EXOSTOSIS [None]
  - INSOMNIA [None]
  - POLLAKIURIA [None]
  - SOMNOLENCE [None]
